FAERS Safety Report 4386402-0 (Version None)
Quarter: 2004Q2

REPORT INFORMATION
  Report Type: 
  Country: None (occurrence: None)
  Receive Date: 20040629
  Receipt Date: 20040614
  Transmission Date: 20050107
  Serious: Yes (Life-Threatening, Hospitalization)
  Sender: FDA-Public Use
  Company Number: CHNY2004GB01074

PATIENT
  Age: 70 Year
  Sex: Male

DRUGS (4)
  1. IBUPROFEN UNKNOWN MANUFACTURER (NCH) [Suspect]
     Indication: PAIN
     Dosage: UNK, UNK
     Route: 048
     Dates: start: 20040511, end: 20040518
  2. METFORMIN [Suspect]
     Dosage: 500 MG, TID
     Route: 048
     Dates: start: 20031001, end: 20040518
  3. GLYBURIDE [Concomitant]
     Dosage: 2.5 MG, QD
     Route: 048
     Dates: start: 20040518
  4. DICLOFENAC [Suspect]

REACTIONS (6)
  - DUODENAL ULCER HAEMORRHAGE [None]
  - GASTRIC ULCER HAEMORRHAGE [None]
  - HAEMATEMESIS [None]
  - LACTIC ACIDOSIS [None]
  - MELAENA [None]
  - REFLUX OESOPHAGITIS [None]
